FAERS Safety Report 6372772-0 (Version None)
Quarter: 2009Q3

REPORT INFORMATION
  Report Type: 
  Country: None (occurrence: None)
  Receive Date: 20090924
  Receipt Date: 20090202
  Transmission Date: 20100115
  Serious: Yes (Hospitalization)
  Sender: FDA-Public Use
  Company Number: US-ASTRAZENECA-2008UW24104

PATIENT
  Age: 19360 Day
  Sex: Female
  Weight: 113.4 kg

DRUGS (4)
  1. SEROQUEL [Suspect]
     Indication: DEPRESSION
     Dosage: 100-200MG
     Route: 048
     Dates: start: 20061101, end: 20070828
  2. SEROQUEL [Suspect]
     Indication: INSOMNIA
     Dosage: 100-200MG
     Route: 048
     Dates: start: 20061101, end: 20070828
  3. EFFEXOR [Concomitant]
     Dates: start: 20070101
  4. LEXAPRO [Concomitant]
     Dates: start: 20070101

REACTIONS (1)
  - DIABETES MELLITUS [None]
